FAERS Safety Report 6427590-1 (Version None)
Quarter: 2009Q4

REPORT INFORMATION
  Report Type: 
  Country: None (occurrence: None)
  Receive Date: 20091104
  Receipt Date: 20091023
  Transmission Date: 20100525
  Serious: Yes (Other)
  Sender: FDA-Public Use
  Company Number: AU-PFIZER INC-2009270072

PATIENT
  Sex: Male

DRUGS (3)
  1. XANAX [Suspect]
  2. ALCOHOL [Suspect]
  3. METHADONE [Concomitant]

REACTIONS (5)
  - AGGRESSION [None]
  - DRUG TOXICITY [None]
  - PHYSICAL ASSAULT [None]
  - POISONING [None]
  - VERBAL ABUSE [None]
